FAERS Safety Report 9055709 (Version 1)
Quarter: 2013Q1

REPORT INFORMATION
  Report Type: Spontaneous
  Country: US (occurrence: US)
  Receive Date: 20130206
  Receipt Date: 20130206
  Transmission Date: 20140127
  Serious: Yes (Death)
  Sender: FDA-Public Use
  Company Number: US-BAXTER-2013BAX003811

PATIENT
  Sex: Male

DRUGS (4)
  1. DIANEAL PD2 [Suspect]
     Indication: PERITONEAL DIALYSIS
     Route: 033
     Dates: end: 20130126
  2. DIANEAL PD2 [Suspect]
     Route: 033
     Dates: end: 20130126
  3. DIANEAL PD2 [Suspect]
     Indication: PERITONEAL DIALYSIS
     Route: 033
     Dates: end: 20130126
  4. DIANEAL PD2 [Suspect]
     Route: 033
     Dates: end: 20130126

REACTIONS (1)
  - Respiratory arrest [Fatal]
